FAERS Safety Report 8277861-1 (Version None)
Quarter: 2012Q2

REPORT INFORMATION
  Report Type: 
  Country: None (occurrence: None)
  Receive Date: 20120412
  Receipt Date: 20120404
  Transmission Date: 20120825
  Serious: Yes (Other)
  Sender: FDA-Public Use
  Company Number: PHHY2012ZA029452

PATIENT
  Sex: Male

DRUGS (4)
  1. ASPIRIN [Concomitant]
  2. EXFORGE [Suspect]
     Dosage: 1 DF (160 MG VAL/10 MG AMLO) DAILY
  3. SIMVASTATIN [Concomitant]
     Dosage: UNK UKN, UNK
     Dates: start: 20080101
  4. EXFORGE [Suspect]
     Dosage: 1 DF, (160 MG VAL/5MG AMLO) DAILY
     Dates: start: 20080701

REACTIONS (7)
  - FALL [None]
  - FIBULA FRACTURE [None]
  - BLOOD PRESSURE INCREASED [None]
  - PRURITUS [None]
  - TIBIA FRACTURE [None]
  - LOWER LIMB FRACTURE [None]
  - HEADACHE [None]
